FAERS Safety Report 11913233 (Version 1)
Quarter: 2016Q1

REPORT INFORMATION
  Report Type: Spontaneous
  Country: US (occurrence: None)
  Receive Date: 20160112
  Receipt Date: 20160112
  Transmission Date: 20160526
  Serious: Yes (Other)
  Sender: FDA-Public Use
  Company Number: None

PATIENT
  Age: 98 Year
  Sex: Male
  Weight: 70.31 kg

DRUGS (13)
  1. ALLOPURINOL. [Concomitant]
     Active Substance: ALLOPURINOL
  2. LEVOTHYROXINE. [Concomitant]
     Active Substance: LEVOTHYROXINE
  3. FUROSEMIDE. [Concomitant]
     Active Substance: FUROSEMIDE
  4. TAMSULOSIN [Concomitant]
     Active Substance: TAMSULOSIN
  5. TOLTERODINE [Concomitant]
     Active Substance: TOLTERODINE
  6. RATIDINE [Concomitant]
  7. FINASTERIDE. [Concomitant]
     Active Substance: FINASTERIDE
  8. AMLODIPINE [Concomitant]
     Active Substance: AMLODIPINE BESYLATE
  9. VICKS SINEX SPRAY [Concomitant]
  10. PREDNISOLONE ACETATE OP 1% 10 ML SANDOZ [Suspect]
     Active Substance: PREDNISOLONE ACETATE
     Indication: EYE INFLAMMATION
     Route: 047
     Dates: start: 20160108, end: 20160108
  11. PRAVASTATIN [Concomitant]
     Active Substance: PRAVASTATIN\PRAVASTATIN SODIUM
  12. MUCINEX [Concomitant]
     Active Substance: GUAIFENESIN
  13. ASPIRIN. [Concomitant]
     Active Substance: ASPIRIN

REACTIONS (1)
  - Vomiting [None]

NARRATIVE: CASE EVENT DATE: 20160108
